FAERS Safety Report 4611075-9 (Version None)
Quarter: 2005Q1

REPORT INFORMATION
  Report Type: 
  Country: None (occurrence: None)
  Receive Date: 20050316
  Receipt Date: 20050316
  Transmission Date: 20050727
  Serious: No
  Sender: FDA-Public Use
  Company Number: None

PATIENT
  Age: 81 Year
  Sex: Male
  Weight: 108.8 kg

DRUGS (8)
  1. WARFARIN [Suspect]
     Dosage: ORAL
     Route: 048
  2. FERROUS SO4 [Concomitant]
  3. METOPROLOL TARTRATE [Concomitant]
  4. ENOXAPARIN [Concomitant]
  5. METFORMIN HCL [Concomitant]
  6. LEVOCABASTINE HCL [Concomitant]
  7. PENTOXIFYLLINE [Concomitant]
  8. ASPIRIN [Concomitant]

REACTIONS (1)
  - INTERNATIONAL NORMALISED RATIO INCREASED [None]
